FAERS Safety Report 9522936 (Version 1)
Quarter: 2013Q1

REPORT INFORMATION
  Report Type: Spontaneous
  Country: US (occurrence: None)
  Receive Date: 20130305
  Receipt Date: 20130305
  Transmission Date: 20140127
  Serious: Yes (Hospitalization, Other)
  Sender: FDA-Public Use
  Company Number: 163-21880-12031198

PATIENT
  Age: 81 Year
  Sex: Male
  Weight: 81.65 kg

DRUGS (10)
  1. REVLIMID (LENALIDOMIDE) (25 MILLIGRAM, CAPSULES) [Suspect]
     Indication: PLASMA CELL MYELOMA
     Dosage: 1 IN 1 D
     Route: 048
     Dates: start: 20120217
  2. WARFARIN [Concomitant]
  3. DIGOXIN [Concomitant]
  4. FENOFIBRATE [Concomitant]
  5. TAMSULOSIN [Concomitant]
  6. AMIODARONE [Concomitant]
  7. LISINOPRIL [Concomitant]
  8. GABAPENTIN [Concomitant]
  9. DEXAMETHASONE [Concomitant]
  10. ZOMETA (ZOLEDRONIC ACID) [Concomitant]

REACTIONS (4)
  - Neck pain [None]
  - Dizziness [None]
  - Asthenia [None]
  - Chest pain [None]
